FAERS Safety Report 13373194 (Version 2)
Quarter: 2018Q3

REPORT INFORMATION
  Report Type: Spontaneous
  Country: DK (occurrence: DK)
  Receive Date: 20170327
  Receipt Date: 20180808
  Transmission Date: 20181010
  Serious: Yes (Life-Threatening, Hospitalization, Other)
  Sender: FDA-Public Use
  Company Number: DK-GLAXOSMITHKLINE-DK2017041501

PATIENT
  Age: 47 Year
  Sex: Male
  Weight: 82 kg

DRUGS (9)
  1. PREDNISON DAK [Concomitant]
     Indication: PULMONARY EOSINOPHILIA
     Dosage: UNK
     Route: 065
  2. ALVESCO [Concomitant]
     Active Substance: CICLESONIDE
     Indication: ASTHMA PROPHYLAXIS
     Dosage: STRENGTH: 160 ?G/DOSE
     Route: 055
     Dates: start: 20150313
  3. HYDROKORTISON ORION [Concomitant]
     Indication: ADRENOCORTICAL STEROID THERAPY
     Dosage: STRENGTH: 10 MG. DOSE: 1 TABLET MORNING AND 1/2 TABLET EVENING
     Route: 048
  4. FOLIMET [Concomitant]
     Indication: PRODUCT USED FOR UNKNOWN INDICATION
     Dosage: UNK
     Route: 065
  5. INNOVAIR [Concomitant]
     Active Substance: BECLOMETHASONE DIPROPIONATE\FORMOTEROL
     Indication: ASTHMA
     Dosage: STRENGTH: 100+6 ?G/DOSE
     Route: 055
  6. AVAMYS [Concomitant]
     Active Substance: FLUTICASONE FUROATE
     Indication: RHINORRHOEA
     Dosage: STRENGTH: 27,5  ?G DOSE: 2 PUFFS IN BOTH NOSTRILS DAILY
     Route: 045
  7. BRICANYL [Concomitant]
     Active Substance: TERBUTALINE SULFATE
     Indication: ASTHMA
     Dosage: STRENGTH: 0,5 MG/DOSE. DOSE: 1 SUCK WHEN ATTACK
     Route: 055
     Dates: start: 20120907
  8. ALENDRONIC ACID [Concomitant]
     Active Substance: ALENDRONIC ACID
     Indication: OSTEOPOROSIS
     Dosage: STYRKE: 70 MG.
     Route: 048
     Dates: start: 20130606
  9. NUCALA [Suspect]
     Active Substance: MEPOLIZUMAB
     Indication: ASTHMA
     Dosage: 100 MG, UNK
     Route: 058
     Dates: start: 20160914

REACTIONS (5)
  - Angina pectoris [Recovered/Resolved]
  - Coronary artery stenosis [Recovered/Resolved]
  - Chest pain [Recovered/Resolved]
  - Chest discomfort [Recovered/Resolved]
  - Percutaneous coronary intervention [Recovered/Resolved]

NARRATIVE: CASE EVENT DATE: 2016
